FAERS Safety Report 9477010 (Version 2)
Quarter: 2013Q4

REPORT INFORMATION
  Report Type: Spontaneous
  Country: GB (occurrence: GB)
  Receive Date: 20130826
  Receipt Date: 20131001
  Transmission Date: 20140711
  Serious: Yes (Disabling, Other)
  Sender: FDA-Public Use
  Company Number: ALCN2013GB004251

PATIENT
  Age: 82 Year
  Sex: Female
  Weight: 76.2 kg

DRUGS (6)
  1. MAXITROL [Suspect]
     Dosage: UNK UNK, 6QD
     Route: 047
     Dates: start: 20121121
  2. BENDROFLUMETHIAZIDE [Concomitant]
     Indication: HYPERTENSION
     Route: 048
  3. BISOPROLOL FUMARATE [Concomitant]
     Indication: HYPERTENSION
  4. CLOPIDOGREL [Concomitant]
  5. EZETIMIBE [Concomitant]
  6. PARACETAMOL [Concomitant]
     Indication: OSTEOARTHRITIS
     Dosage: 6 UNK, QD
     Dates: start: 20121121

REACTIONS (3)
  - Giant papillary conjunctivitis [Recovered/Resolved with Sequelae]
  - Pain [Recovered/Resolved with Sequelae]
  - Reaction to preservatives [Unknown]
